FAERS Safety Report 11443885 (Version 1)
Quarter: 2015Q3

REPORT INFORMATION
  Report Type: Spontaneous
  Country: US (occurrence: US)
  Receive Date: 20150901
  Receipt Date: 20150901
  Transmission Date: 20151125
  Serious: Yes (Death, Other)
  Sender: FDA-Public Use
  Company Number: US-AMGEN-USASP2015089034

PATIENT
  Age: 68 Year
  Sex: Female

DRUGS (1)
  1. XGEVA [Suspect]
     Active Substance: DENOSUMAB
     Indication: RENAL CELL CARCINOMA
     Dosage: 120 MG, UNK
     Route: 058
     Dates: start: 20150212, end: 20150406

REACTIONS (2)
  - Death [Fatal]
  - Hospice care [Unknown]

NARRATIVE: CASE EVENT DATE: 20150701
